FAERS Safety Report 8401357-7 (Version None)
Quarter: 2012Q2

REPORT INFORMATION
  Report Type: 
  Country: None (occurrence: None)
  Receive Date: 20120530
  Receipt Date: 20120530
  Transmission Date: 20120825
  Serious: No
  Sender: FDA-Public Use
  Company Number: None

PATIENT
  Age: 61 Year
  Sex: Female
  Weight: 84.4 kg

DRUGS (1)
  1. KENALOG [Suspect]
     Dosage: 200MG/5ML BOX NDC0003-0293-20 VS 40MG/ML BOX NDC 0003-0293-05
     Dates: start: 20120503

REACTIONS (2)
  - INCORRECT DOSE ADMINISTERED [None]
  - DRUG LABEL CONFUSION [None]
